FAERS Safety Report 11540354 (Version 1)
Quarter: 2015Q3

REPORT INFORMATION
  Report Type: Spontaneous
  Country: US (occurrence: US)
  Receive Date: 20150923
  Receipt Date: 20150923
  Transmission Date: 20151125
  Serious: No
  Sender: FDA-Public Use
  Company Number: US-BEH-2014044284

PATIENT
  Age: 12 Year
  Sex: Male
  Weight: 55 kg

DRUGS (10)
  1. PRIVIGEN [Suspect]
     Active Substance: HUMAN IMMUNOGLOBULIN G
     Indication: SELECTIVE IGG SUBCLASS DEFICIENCY
     Route: 042
     Dates: start: 20140630, end: 20140630
  2. CIMETIDINE [Concomitant]
     Active Substance: CIMETIDINE
  3. RIBOFLAVIN [Concomitant]
     Active Substance: RIBOFLAVIN
  4. MAXALT [Concomitant]
     Active Substance: RIZATRIPTAN BENZOATE
  5. INTUNIV [Concomitant]
     Active Substance: GUANFACINE HYDROCHLORIDE
  6. ALL OTHER THERAPEUTIC PRODUCTS [Concomitant]
     Active Substance: UNSPECIFIED INGREDIENT
  7. MAGNESIUM OXIDE. [Concomitant]
     Active Substance: MAGNESIUM OXIDE
  8. VITAMIN B12 [Concomitant]
     Active Substance: CYANOCOBALAMIN
  9. PRIVIGEN [Suspect]
     Active Substance: HUMAN IMMUNOGLOBULIN G
     Indication: IMMUNODEFICIENCY
     Route: 042
     Dates: start: 20140630, end: 20140630
  10. CO-Q 10 [Concomitant]

REACTIONS (3)
  - Pain [Recovered/Resolved]
  - Viral infection [Recovered/Resolved]
  - Pyrexia [Recovered/Resolved]

NARRATIVE: CASE EVENT DATE: 20140701
